FAERS Safety Report 23925787 (Version 1)
Quarter: 2024Q2

REPORT INFORMATION
  Report Type: Spontaneous
  Country: US (occurrence: US)
  Receive Date: 20240531
  Receipt Date: 20240531
  Transmission Date: 20240716
  Serious: No
  Sender: FDA-Public Use
  Company Number: US-PFIZER INC-PV202400070775

PATIENT
  Age: 65 Year
  Sex: Male

DRUGS (25)
  1. VORICONAZOLE [Interacting]
     Active Substance: VORICONAZOLE
     Dosage: 200 MG
     Route: 065
  2. JAKAFI [Interacting]
     Active Substance: RUXOLITINIB
     Indication: Graft versus host disease
     Dosage: 10 MG, 2X/DAY
     Route: 048
  3. ACYCLOVIR [Concomitant]
     Active Substance: ACYCLOVIR
  4. BACTRIM DS [Concomitant]
     Active Substance: SULFAMETHOXAZOLE\TRIMETHOPRIM
  5. BUDESONIDE [Concomitant]
     Active Substance: BUDESONIDE
  6. CARAFATE [Concomitant]
     Active Substance: SUCRALFATE
  7. ELIDEL [Concomitant]
     Active Substance: PIMECROLIMUS
  8. ELIQUIS [Concomitant]
     Active Substance: APIXABAN
  9. FOLIC ACID [Concomitant]
     Active Substance: FOLIC ACID
  10. HUMALOG [Concomitant]
     Active Substance: INSULIN LISPRO
  11. LASIX [Concomitant]
     Active Substance: FUROSEMIDE
  12. MAGNESIUM [Concomitant]
     Active Substance: MAGNESIUM
  13. METOPROLOL [Concomitant]
     Active Substance: METOPROLOL
  14. NOVOLIN N [Concomitant]
     Active Substance: INSULIN HUMAN
  15. ONDANSETRON [Concomitant]
     Active Substance: ONDANSETRON
  16. PANTOPRAZOLE [Concomitant]
     Active Substance: PANTOPRAZOLE
  17. POTASSIUM CHLORIDE [Concomitant]
     Active Substance: POTASSIUM CHLORIDE
  18. PREDNISONE [Concomitant]
     Active Substance: PREDNISONE
  19. RESTASIS [Concomitant]
     Active Substance: CYCLOSPORINE
  20. TACROLIMUS [Concomitant]
     Active Substance: TACROLIMUS
  21. URSODIOL [Concomitant]
     Active Substance: URSODIOL
  22. VITAMIN B1 [Concomitant]
     Active Substance: THIAMINE HYDROCHLORIDE
  23. VITAMIN D NOS [Concomitant]
     Active Substance: CHOLECALCIFEROL\ERGOCALCIFEROL
  24. XYZAL ALLERGY 24HR [Concomitant]
     Active Substance: LEVOCETIRIZINE DIHYDROCHLORIDE
  25. PREVYMIS [Concomitant]
     Active Substance: LETERMOVIR

REACTIONS (4)
  - Potentiating drug interaction [Unknown]
  - Flatulence [Unknown]
  - Product dose omission issue [Unknown]
  - Diarrhoea [Unknown]
